APPROVED DRUG PRODUCT: PANCURONIUM BROMIDE
Active Ingredient: PANCURONIUM BROMIDE
Strength: 1MG/ML
Dosage Form/Route: INJECTABLE;INJECTION
Application: A072320 | Product #001
Applicant: HOSPIRA INC
Approved: Jan 19, 1989 | RLD: No | RS: No | Type: DISCN